FAERS Safety Report 8612580-0 (Version None)
Quarter: 2012Q3

REPORT INFORMATION
  Report Type: 
  Country: None (occurrence: None)
  Receive Date: 20120822
  Receipt Date: 20111017
  Transmission Date: 20120928
  Serious: No
  Sender: FDA-Public Use
  Company Number: US-ASTRAZENECA-2011SE62372

PATIENT
  Age: 71 Year
  Sex: Female
  Weight: 68 kg

DRUGS (10)
  1. PREDNISONE TAB [Concomitant]
     Indication: SYSTEMIC LUPUS ERYTHEMATOSUS
  2. WARFARIN SODIUM [Concomitant]
     Indication: ANTICOAGULANT THERAPY
  3. SYMBICORT [Suspect]
     Indication: CHRONIC OBSTRUCTIVE PULMONARY DISEASE
     Dosage: 160/4.5 MCG, TWO TIMES A DAY
     Route: 055
     Dates: start: 20111006
  4. SIMVASTATIN [Concomitant]
     Indication: HYPERCHOLESTEROLAEMIA
  5. DIGOXIN [Concomitant]
     Indication: CARDIAC DISORDER
  6. METOPROLOL TARTRATE [Concomitant]
     Indication: CARDIAC DISORDER
  7. FUROSOMIDE [Concomitant]
     Indication: PERICARDIAL EFFUSION
  8. OMEPRAZOLE [Concomitant]
     Indication: GASTRIC DISORDER
  9. LEVOTHYROXINE SODIUM [Concomitant]
     Indication: THYROID DISORDER
  10. PAROXETINE [Concomitant]
     Indication: NERVOUSNESS

REACTIONS (3)
  - PAROSMIA [None]
  - DRUG DOSE OMISSION [None]
  - DYSPHONIA [None]
